FAERS Safety Report 10631084 (Version 5)
Quarter: 2015Q1

REPORT INFORMATION
  Report Type: Spontaneous
  Country: US (occurrence: US)
  Receive Date: 20141205
  Receipt Date: 20150224
  Transmission Date: 20150720
  Serious: No
  Sender: FDA-Public Use
  Company Number: US-PFIZER INC-2014314529

PATIENT
  Age: 66 Year
  Sex: Female
  Weight: 119 kg

DRUGS (4)
  1. LASIX [Concomitant]
     Active Substance: FUROSEMIDE
     Dosage: UNK
  2. SUTENT [Suspect]
     Active Substance: SUNITINIB MALATE
     Indication: RENAL CANCER METASTATIC
     Dosage: 50 MG, CYCLIC (FOR 28 DAYS ON AND 14 DAYS OFF)
     Route: 048
     Dates: start: 20141128, end: 20141219
  3. D400 [Concomitant]
     Dosage: UNK
  4. SPIRONOLACTONE. [Concomitant]
     Active Substance: SPIRONOLACTONE
     Dosage: UNK

REACTIONS (14)
  - Vomiting [Unknown]
  - Fungal infection [Unknown]
  - Oral pain [Unknown]
  - Asthenia [Unknown]
  - Dizziness [Unknown]
  - Dysphagia [Unknown]
  - Blood pressure increased [Unknown]
  - Pruritus generalised [Unknown]
  - Disease progression [Unknown]
  - Renal cancer metastatic [Unknown]
  - Skin fissures [Unknown]
  - Glossodynia [Unknown]
  - Stomatitis [Unknown]
  - Ageusia [Unknown]

NARRATIVE: CASE EVENT DATE: 2014
